FAERS Safety Report 19243423 (Version 1)
Quarter: 2021Q2

REPORT INFORMATION
  Report Type: Spontaneous
  Country: US (occurrence: US)
  Receive Date: 20210511
  Receipt Date: 20210511
  Transmission Date: 20210717
  Serious: No
  Sender: FDA-Public Use
  Company Number: US-G1-000297

PATIENT
  Sex: Female

DRUGS (5)
  1. ETOPOSIDE. [Concomitant]
     Active Substance: ETOPOSIDE
     Dates: start: 20210414
  2. CARBOPLATIN. [Concomitant]
     Active Substance: CARBOPLATIN
     Dates: start: 20210414
  3. COSELA [Suspect]
     Active Substance: TRILACICLIB DIHYDROCHLORIDE
     Dates: start: 20210414
  4. COSELA [Suspect]
     Active Substance: TRILACICLIB DIHYDROCHLORIDE
     Dates: start: 20150415
  5. TECENTRIQ [Concomitant]
     Active Substance: ATEZOLIZUMAB
     Dates: start: 20210414

REACTIONS (1)
  - Infusion site pain [Recovering/Resolving]

NARRATIVE: CASE EVENT DATE: 20210414
